FAERS Safety Report 20665363 (Version 3)
Quarter: 2022Q2

REPORT INFORMATION
  Report Type: Spontaneous
  Country: US (occurrence: None)
  Receive Date: 20220402
  Receipt Date: 20220512
  Transmission Date: 20220720
  Serious: No
  Sender: FDA-Public Use
  Company Number: 2022A122376

PATIENT
  Sex: Male
  Weight: 178.3 kg

DRUGS (2)
  1. BYDUREON BCISE [Suspect]
     Active Substance: EXENATIDE
     Indication: Type 2 diabetes mellitus
     Route: 058
  2. BYDUREON [Suspect]
     Active Substance: EXENATIDE
     Indication: Type 2 diabetes mellitus
     Dosage: ONCE A WEEK
     Route: 058

REACTIONS (11)
  - Injection site haemorrhage [Unknown]
  - Glycosylated haemoglobin abnormal [Unknown]
  - Chest pain [Unknown]
  - Abdominal pain upper [Unknown]
  - Diarrhoea [Unknown]
  - Appetite disorder [Unknown]
  - Illness [Unknown]
  - Weight decreased [Unknown]
  - Arthralgia [Unknown]
  - Device delivery system issue [Unknown]
  - Wrong technique in device usage process [Unknown]
